FAERS Safety Report 7609079-7 (Version None)
Quarter: 2011Q3

REPORT INFORMATION
  Report Type: 
  Country: None (occurrence: None)
  Receive Date: 20110714
  Receipt Date: 20110712
  Transmission Date: 20111222
  Serious: Yes (Other)
  Sender: FDA-Public Use
  Company Number: JP-PFIZER INC-2011148195

PATIENT
  Age: 69 Year
  Sex: Male
  Weight: 47.5 kg

DRUGS (10)
  1. GABAPENTIN [Suspect]
     Indication: HEADACHE
  2. GASTROM [Concomitant]
     Dosage: 3G/DAY
     Route: 048
  3. CEPHADOL [Concomitant]
     Dosage: 2 TABLETS/DAY
     Route: 048
  4. SENNOSIDE [Concomitant]
     Dosage: 3 TABLETS/DAY
     Route: 048
  5. CANDESARTAN CILEXETIL [Concomitant]
     Dosage: 2MG/DAY
     Route: 048
  6. GABAPENTIN [Suspect]
     Indication: TRIGEMINAL NEURALGIA
     Dosage: 200 MG, 1X/DAY
     Route: 048
     Dates: start: 20091015, end: 20091018
  7. TEGRETOL [Concomitant]
     Dosage: 200MG/DAY
     Route: 048
  8. LANSORAL [Concomitant]
     Dosage: 30MG/DAY
     Route: 048
  9. METHYCOBAL [Concomitant]
     Dosage: 1500UG/DAY
     Route: 048
  10. JUVELA NICOTINATE [Concomitant]
     Dosage: 2 CAPSULES/DAY
     Route: 048

REACTIONS (2)
  - DIZZINESS [None]
  - MUSCULAR WEAKNESS [None]
